FAERS Safety Report 13781338 (Version 12)
Quarter: 2019Q1

REPORT INFORMATION
  Report Type: Spontaneous
  Country: NO (occurrence: NO)
  Receive Date: 20170724
  Receipt Date: 20190223
  Transmission Date: 20190417
  Serious: Yes (Hospitalization, Disabling, Other)
  Sender: FDA-Public Use
  Company Number: NO-AMGEN-NORSP2017110234

PATIENT
  Age: 40 Year
  Sex: Male

DRUGS (31)
  1. REMICADE [Suspect]
     Active Substance: INFLIXIMAB
     Indication: PSORIASIS
     Dosage: UNK
     Route: 042
     Dates: start: 200903, end: 200904
  2. STELARA [Suspect]
     Active Substance: USTEKINUMAB
     Dosage: 1 ML EVERY 10TH WEEK
     Route: 058
  3. NEURONTIN [Concomitant]
     Active Substance: GABAPENTIN
  4. LYRICA [Concomitant]
     Active Substance: PREGABALIN
     Indication: ARTHRALGIA
     Dosage: UNK
  5. LYRICA [Concomitant]
     Active Substance: PREGABALIN
     Indication: MYALGIA
     Dosage: UNK UNK, UNK
  6. OXYCONTIN [Concomitant]
     Active Substance: OXYCODONE HYDROCHLORIDE
     Indication: MYALGIA
     Dosage: UNK
     Route: 065
  7. OXYCONTIN [Concomitant]
     Active Substance: OXYCODONE HYDROCHLORIDE
     Indication: ARTHRALGIA
     Dosage: UNK, UNK
  8. FENTANYL. [Concomitant]
     Active Substance: FENTANYL
     Indication: ARTHRALGIA
     Dosage: UNK
  9. ELOCON [Concomitant]
     Active Substance: MOMETASONE FUROATE
     Indication: PSORIASIS
     Dosage: UNK
     Route: 065
  10. DIPROSALIC [Concomitant]
     Active Substance: BETAMETHASONE DIPROPIONATE
     Indication: PSORIASIS
     Dosage: UNK
     Route: 065
  11. SAROTEX [Concomitant]
     Active Substance: AMITRIPTYLINE HYDROCHLORIDE
  12. ENBREL [Suspect]
     Active Substance: ETANERCEPT
     Indication: PSORIASIS
     Dosage: INJETIONS AT INCREASING DOSES
     Route: 065
     Dates: start: 200501, end: 2009
  13. METHOTREXATE SODIUM. [Suspect]
     Active Substance: METHOTREXATE SODIUM
     Indication: PSORIASIS
     Dosage: UNK
     Route: 065
     Dates: start: 200911, end: 2011
  14. SAROTEX [Concomitant]
     Active Substance: AMITRIPTYLINE HYDROCHLORIDE
     Indication: MYALGIA
     Dosage: IN INCREASING DOSE
  15. NEURONTIN [Concomitant]
     Active Substance: GABAPENTIN
     Indication: MYALGIA
  16. FENTANYL. [Concomitant]
     Active Substance: FENTANYL
  17. DAIVOBET [Concomitant]
     Active Substance: BETAMETHASONE DIPROPIONATE\CALCIPOTRIENE
     Indication: PSORIASIS
     Dosage: UNK
     Route: 065
  18. STELARA [Suspect]
     Active Substance: USTEKINUMAB
     Indication: PSORIASIS
     Dosage: INCREASING DOSES FROM 45-90 MG, 1 ML EVERY 10TH WEEK
     Route: 058
     Dates: start: 200911, end: 2010
  19. ENBREL [Suspect]
     Active Substance: ETANERCEPT
     Indication: PSORIASIS
  20. METHOTREXATE SODIUM. [Suspect]
     Active Substance: METHOTREXATE SODIUM
     Indication: PSORIASIS
     Dosage: UNK
     Route: 065
     Dates: start: 199802, end: 199809
  21. REMICADE [Suspect]
     Active Substance: INFLIXIMAB
     Dosage: UNK
     Route: 042
     Dates: end: 1999
  22. STELARA [Suspect]
     Active Substance: USTEKINUMAB
     Dosage: 90 MG, 1 ML EVERY 10TH WEEK
     Route: 058
  23. FENTANYL. [Concomitant]
     Active Substance: FENTANYL
     Indication: MYALGIA
  24. NEOTIGASON [Suspect]
     Active Substance: ACITRETIN
     Indication: PSORIASIS
     Dosage: UNK
     Route: 065
     Dates: start: 199902, end: 199909
  25. REMICADE [Suspect]
     Active Substance: INFLIXIMAB
     Indication: PSORIASIS
     Dosage: UNK
     Route: 042
     Dates: start: 2003, end: 2005
  26. NEURONTIN [Concomitant]
     Active Substance: GABAPENTIN
     Indication: ARTHRALGIA
     Dosage: UNK
     Route: 065
  27. SANDIMMUN [Suspect]
     Active Substance: CYCLOSPORINE
     Indication: PSORIASIS
     Dosage: FOR A SHORT PERIOD OF TIME
     Route: 065
     Dates: start: 2001, end: 2001
  28. STELARA [Suspect]
     Active Substance: USTEKINUMAB
     Dosage: 1 ML EVERY 10TH WEEK
     Route: 058
  29. STELARA [Suspect]
     Active Substance: USTEKINUMAB
  30. SAROTEX [Concomitant]
     Active Substance: AMITRIPTYLINE HYDROCHLORIDE
     Indication: ARTHRALGIA
  31. SILKIS [Concomitant]
     Active Substance: CALCITRIOL
     Indication: PSORIASIS
     Dosage: UNK
     Route: 065

REACTIONS (2)
  - Drug effect decreased [Unknown]
  - Osteonecrosis [Not Recovered/Not Resolved]

NARRATIVE: CASE EVENT DATE: 20160202
